FAERS Safety Report 4553663-4 (Version None)
Quarter: 2004Q4

REPORT INFORMATION
  Report Type: 
  Country: None (occurrence: None)
  Receive Date: 20041227
  Receipt Date: 20040413
  Transmission Date: 20050328
  Serious: Yes (Other)
  Sender: FDA-Public Use
  Company Number: US-JNJFOC-20040402552

PATIENT
  Sex: Female

DRUGS (2)
  1. REOPRO [Suspect]
     Indication: CORONARY ARTERY SURGERY
     Dosage: INTRAVENOUS
     Route: 042
  2. HEPARIN [Concomitant]

REACTIONS (1)
  - PLATELET COUNT DECREASED [None]
